FAERS Safety Report 7426938-9 (Version None)
Quarter: 2011Q2

REPORT INFORMATION
  Report Type: 
  Country: None (occurrence: None)
  Receive Date: 20110420
  Receipt Date: 20110412
  Transmission Date: 20111010
  Serious: Yes (Hospitalization, Other)
  Sender: FDA-Public Use
  Company Number: BR-ABBOTT-11P-020-0700267-00

PATIENT
  Sex: Female
  Weight: 50 kg

DRUGS (5)
  1. HUMIRA [Suspect]
     Dates: end: 20110110
  2. HUMIRA [Suspect]
     Indication: CROHN'S DISEASE
     Dates: start: 20090101
  3. HUMIRA [Suspect]
     Dosage: INDUCTION DOSE
     Dates: start: 20100201
  4. HUMIRA [Suspect]
     Route: 058
  5. VANCOMYCIN [Suspect]
     Indication: INFECTION
     Route: 042

REACTIONS (25)
  - CROHN'S DISEASE [None]
  - ENDOCARDITIS [None]
  - INTESTINAL POLYP [None]
  - OSTEOMYELITIS [None]
  - HYPOVITAMINOSIS [None]
  - RENAL FAILURE [None]
  - FUNGAL INFECTION [None]
  - BONE PAIN [None]
  - CATHETER SITE ERYTHEMA [None]
  - FUSARIUM INFECTION [None]
  - INFECTION [None]
  - ANKYLOSING SPONDYLITIS [None]
  - SEPSIS [None]
  - HAEMORRHAGE [None]
  - COLITIS ULCERATIVE [None]
  - ABSCESS FUNGAL [None]
  - BACTERIAL INFECTION [None]
  - IMPLANT SITE ABSCESS [None]
  - IMMUNODEFICIENCY [None]
  - IMPLANT SITE INFECTION [None]
  - HYPOTHERMIA [None]
  - CATHETER SITE INFECTION [None]
  - SACROILIITIS [None]
  - DIARRHOEA [None]
  - PYREXIA [None]
